FAERS Safety Report 11602236 (Version 1)
Quarter: 2015Q4

REPORT INFORMATION
  Report Type: Spontaneous
  Country: US (occurrence: US)
  Receive Date: 20151006
  Receipt Date: 20151006
  Transmission Date: 20160304
  Serious: No
  Sender: FDA-Public Use
  Company Number: US-AMGEN-USASP2015042036

PATIENT
  Age: 80 Year
  Sex: Female

DRUGS (1)
  1. PROLIA [Suspect]
     Active Substance: DENOSUMAB
     Indication: ARTHRITIS
     Dosage: 60 MG, UNK
     Route: 065
     Dates: start: 20150414

REACTIONS (2)
  - Off label use [Unknown]
  - Hypersensitivity [Recovered/Resolved]
